FAERS Safety Report 8110017-1 (Version None)
Quarter: 2012Q1

REPORT INFORMATION
  Report Type: 
  Country: None (occurrence: None)
  Receive Date: 20120202
  Receipt Date: 20120104
  Transmission Date: 20120608
  Serious: Yes (Death)
  Sender: FDA-Public Use
  Company Number: US-COVIDIEN/TYCO HEALTHCARE/MALLINCKRODT-T201200081

PATIENT
  Age: 38 Year
  Sex: Female

DRUGS (8)
  1. DIAZEPAM [Suspect]
     Route: 048
  2. ETHANOL [Suspect]
     Route: 048
  3. CODEINE SULFATE [Suspect]
     Route: 048
  4. LISINOPRIL [Suspect]
     Route: 048
  5. METHADOSE [Suspect]
     Route: 048
  6. LAXATIVES [Suspect]
  7. HYDROCODONE BITARTRATE [Suspect]
     Route: 048
  8. PROPOXYPHENE HYDROCHLORIDE [Suspect]
     Route: 048

REACTIONS (2)
  - CARDIO-RESPIRATORY ARREST [None]
  - COMPLETED SUICIDE [None]
